FAERS Safety Report 6346997-4 (Version None)
Quarter: 2009Q3

REPORT INFORMATION
  Report Type: 
  Country: None (occurrence: None)
  Receive Date: 20090910
  Receipt Date: 20090827
  Transmission Date: 20100115
  Serious: Yes (Other)
  Sender: FDA-Public Use
  Company Number: CA-TYCO HEALTHCARE/MALLINCKRODT-T200901617

PATIENT

DRUGS (1)
  1. HYDROMORPHONE [Suspect]
     Indication: DRUG DEPENDENCE

REACTIONS (2)
  - ABSCESS [None]
  - CELLULITIS [None]
